FAERS Safety Report 4501294-4 (Version None)
Quarter: 2004Q3

REPORT INFORMATION
  Report Type: 
  Country: None (occurrence: None)
  Receive Date: 20040928
  Receipt Date: 20040816
  Transmission Date: 20050211
  Serious: No
  Sender: FDA-Public Use
  Company Number: 04P-163-02720748-00

PATIENT
  Age: 63 Year
  Sex: Female

DRUGS (10)
  1. HUMIRA [Suspect]
     Indication: RHEUMATOID ARTHRITIS
     Dosage: 40 MG 1 IN 2 WK SUBCUTANEOUS
     Route: 058
     Dates: start: 20031201
  2. VALPROATE SODIUM [Concomitant]
  3. SERETIDE MITE [Concomitant]
  4. FOLIC ACID [Concomitant]
  5. VITAMIN B COMPLEX CAP [Concomitant]
  6. TOCOPHEROL CONCENTRATE CAP [Concomitant]
  7. MULTI-VITAMINS [Concomitant]
  8. LINSEED OIL [Concomitant]
  9. FISH OIL [Concomitant]
  10. METHOTREXATE [Concomitant]

REACTIONS (1)
  - SINUS CONGESTION [None]
